FAERS Safety Report 5427436-4 (Version None)
Quarter: 2007Q3

REPORT INFORMATION
  Report Type: 
  Country: None (occurrence: None)
  Receive Date: 20070828
  Receipt Date: 20070817
  Transmission Date: 20080115
  Serious: Yes (Other)
  Sender: FDA-Public Use
  Company Number: US-ELI_LILLY_AND_COMPANY-US200708003845

PATIENT
  Age: 44 Year
  Sex: Female
  Weight: 82.993 kg

DRUGS (3)
  1. GEMZAR [Suspect]
     Indication: ENDOMETRIAL CANCER
     Dosage: UNK, UNK
     Dates: start: 20070301
  2. CARBOPLATIN [Concomitant]
     Indication: ENDOMETRIAL CANCER
     Dates: start: 20070301, end: 20070101
  3. FOSAMAX [Concomitant]
     Dates: start: 20070801

REACTIONS (14)
  - BLOOD MAGNESIUM DECREASED [None]
  - BLOOD POTASSIUM DECREASED [None]
  - COUGH [None]
  - DEEP VEIN THROMBOSIS [None]
  - DYSPNOEA [None]
  - FACE OEDEMA [None]
  - HEART RATE INCREASED [None]
  - HYPERSENSITIVITY [None]
  - LUNG INJURY [None]
  - OEDEMA PERIPHERAL [None]
  - PLATELET COUNT DECREASED [None]
  - PULMONARY EMBOLISM [None]
  - THROAT TIGHTNESS [None]
  - WEIGHT INCREASED [None]
